FAERS Safety Report 25434139 (Version 1)
Quarter: 2025Q2

REPORT INFORMATION
  Report Type: Report from Study
  Country: ZA (occurrence: ZA)
  Receive Date: 20250613
  Receipt Date: 20250613
  Transmission Date: 20250717
  Serious: Yes (Other)
  Sender: ALEXION PHARMACEUTICALS
  Company Number: ZA-AstraZeneca-CH-00889658A

PATIENT
  Age: 64 Year

DRUGS (5)
  1. BUDESONIDE\FORMOTEROL [Suspect]
     Active Substance: BUDESONIDE\FORMOTEROL
     Indication: Asthma
  2. PREDNISONE [Concomitant]
     Active Substance: PREDNISONE
  3. Budair [Concomitant]
     Indication: Rhinitis allergic
  4. Topraz [Concomitant]
     Indication: Asthma
  5. ALBUTEROL SULFATE [Concomitant]
     Active Substance: ALBUTEROL SULFATE
     Indication: Bronchospasm

REACTIONS (1)
  - Deafness [Unknown]
